FAERS Safety Report 6744710-X (Version None)
Quarter: 2010Q2

REPORT INFORMATION
  Report Type: 
  Country: None (occurrence: None)
  Receive Date: 20100526
  Receipt Date: 20100526
  Transmission Date: 20101027
  Serious: Yes (Disabling)
  Sender: FDA-Public Use
  Company Number: None

PATIENT
  Sex: Female

DRUGS (1)
  1. SIMVASTATIN [Suspect]
     Indication: BLOOD CHOLESTEROL INCREASED
     Dosage: 40 MG QD PO
     Route: 048
     Dates: start: 20071101, end: 20100113

REACTIONS (7)
  - ABASIA [None]
  - DYSPNOEA [None]
  - FATIGUE [None]
  - MUSCULAR WEAKNESS [None]
  - PAIN IN EXTREMITY [None]
  - PALPITATIONS [None]
  - SENSORY DISTURBANCE [None]
